FAERS Safety Report 5394714-7 (Version None)
Quarter: 2007Q3

REPORT INFORMATION
  Report Type: 
  Country: None (occurrence: None)
  Receive Date: 20070723
  Receipt Date: 20070709
  Transmission Date: 20080115
  Serious: Yes (Hospitalization)
  Sender: FDA-Public Use
  Company Number: AU-GENENTECH-219755

PATIENT
  Sex: Female

DRUGS (19)
  1. BEVACIZUMAB [Suspect]
     Indication: COLORECTAL CANCER METASTATIC
     Dosage: 585 UNK, UNK
  2. CAPECITABINE [Suspect]
     Indication: COLORECTAL CANCER METASTATIC
     Dosage: 4900 MG, QD
     Dates: start: 20050828, end: 20051009
  3. CAPECITABINE [Suspect]
     Dosage: 2450 MG, QD
     Route: 048
  4. ASPIRIN [Concomitant]
     Indication: DRUG USE FOR UNKNOWN INDICATION
     Dates: start: 20050826
  5. PANTOPRAZOLE SODIUM [Concomitant]
     Indication: DRUG USE FOR UNKNOWN INDICATION
     Dosage: UNK, UNK
     Dates: start: 20051004
  6. ENOXAPARIN SODIUM [Concomitant]
     Indication: DRUG USE FOR UNKNOWN INDICATION
  7. DIAMICRON [Concomitant]
     Indication: DRUG USE FOR UNKNOWN INDICATION
     Dosage: 60 MG, QD
     Dates: start: 20051004
  8. AUGMENTIN '125' [Concomitant]
     Indication: DRUG USE FOR UNKNOWN INDICATION
     Dates: start: 20051004
  9. NYSTATIN [Concomitant]
     Dosage: 1 MG, QID
     Route: 048
  10. CEFTAZIDIME [Concomitant]
     Indication: DRUG USE FOR UNKNOWN INDICATION
     Dosage: 2 G, TID
     Route: 042
     Dates: start: 20050915
  11. NEUPOGEN [Concomitant]
     Indication: DRUG USE FOR UNKNOWN INDICATION
     Dates: start: 20050915
  12. MAXOLON [Concomitant]
     Indication: DRUG USE FOR UNKNOWN INDICATION
     Dosage: 20 MG, QID
     Route: 042
     Dates: start: 20050915
  13. FOLINIC ACID [Concomitant]
     Dates: end: 20050301
  14. MORPHINE [Concomitant]
     Indication: DRUG USE FOR UNKNOWN INDICATION
     Dosage: 2.5 MG, QD
     Dates: start: 20050915
  15. CLEXANE [Concomitant]
     Indication: DRUG USE FOR UNKNOWN INDICATION
     Dosage: 40 MG, QD
     Dates: start: 20050915
  16. LIGNOCAINE [Concomitant]
     Indication: DRUG USE FOR UNKNOWN INDICATION
     Dosage: 20 ML, QID
     Route: 061
     Dates: start: 20050915
  17. PANTOPRAZOLE SODIUM [Concomitant]
     Dosage: 40 MG, QD
     Dates: start: 20050915
  18. AMPICILLIN [Concomitant]
     Dosage: 1 G, Q2H
     Route: 042
     Dates: start: 20051008
  19. GENTAMICIN [Concomitant]
     Dosage: 180 MG, UNK
     Route: 048
     Dates: start: 20050915

REACTIONS (6)
  - FEBRILE NEUTROPENIA [None]
  - HYPERGLYCAEMIA [None]
  - MYOCARDIAL ISCHAEMIA [None]
  - NEUTROPHILIA [None]
  - PYREXIA [None]
  - RENAL HAEMORRHAGE [None]
